FAERS Safety Report 6249528-2 (Version None)
Quarter: 2009Q2

REPORT INFORMATION
  Report Type: 
  Country: None (occurrence: None)
  Receive Date: 20090629
  Receipt Date: 20081121
  Transmission Date: 20091009
  Serious: No
  Sender: FDA-Public Use
  Company Number: A0757874A

PATIENT
  Sex: Female

DRUGS (3)
  1. ZYBAN [Suspect]
     Route: 048
     Dates: start: 20020101
  2. CHEMOTHERAPY [Concomitant]
  3. EFFEXOR [Concomitant]

REACTIONS (1)
  - IMPAIRED WORK ABILITY [None]
